FAERS Safety Report 7875291-5 (Version None)
Quarter: 2011Q4

REPORT INFORMATION
  Report Type: 
  Country: None (occurrence: None)
  Receive Date: 20111031
  Receipt Date: 20111024
  Transmission Date: 20120403
  Serious: Yes (Hospitalization, Other)
  Sender: FDA-Public Use
  Company Number: PL-PFIZER INC-2011259051

PATIENT
  Age: 50 Year
  Sex: Female

DRUGS (5)
  1. CYTISINE [Suspect]
     Dosage: 30 MG, SINGLE
  2. TRAZODONE HCL [Suspect]
     Dosage: 1050 MG, SINGLE
  3. MOCLOBEMIDE [Suspect]
     Dosage: 4500 MG, SINGLE
  4. MIANSERIN [Suspect]
     Dosage: 300 MG, SINGLE
  5. ETHANOL [Suspect]
     Dosage: AMOUNT UNKNOWN

REACTIONS (4)
  - SUICIDE ATTEMPT [None]
  - ACUTE RESPIRATORY FAILURE [None]
  - TOXICITY TO VARIOUS AGENTS [None]
  - SEROTONIN SYNDROME [None]
